FAERS Safety Report 21639298 (Version 1)
Quarter: 2022Q4

REPORT INFORMATION
  Report Type: Report from Study
  Country: BR (occurrence: BR)
  Receive Date: 20221124
  Receipt Date: 20221124
  Transmission Date: 20230113
  Serious: Yes (Other)
  Sender: FDA-Public Use
  Company Number: BR-TAKEDA-2022TUS088388

PATIENT
  Sex: Female

DRUGS (2)
  1. VEDOLIZUMAB [Suspect]
     Active Substance: VEDOLIZUMAB
     Indication: Colitis ulcerative
     Dosage: 300 MILLIGRAM, MONTHLY
     Route: 042
  2. ASPIRIN [Concomitant]
     Active Substance: ASPIRIN
     Indication: Blood disorder
     Dosage: 10 MILLIGRAM, BID

REACTIONS (18)
  - Deafness unilateral [Unknown]
  - Swelling [Unknown]
  - Bone pain [Unknown]
  - Osteoarthritis [Unknown]
  - Fibromyalgia [Unknown]
  - Poor peripheral circulation [Unknown]
  - Memory impairment [Unknown]
  - Sleep disorder [Unknown]
  - Abdominal pain upper [Unknown]
  - Inflammation [Unknown]
  - Ear inflammation [Unknown]
  - Tinnitus [Unknown]
  - Vein disorder [Unknown]
  - Ear pain [Unknown]
  - Arthralgia [Unknown]
  - Headache [Unknown]
  - Pyrexia [Unknown]
  - Erythema [Unknown]
